FAERS Safety Report 16177078 (Version 1)
Quarter: 2019Q2

REPORT INFORMATION
  Report Type: Spontaneous
  Country: ZA (occurrence: ZA)
  Receive Date: 20190409
  Receipt Date: 20190409
  Transmission Date: 20190711
  Serious: Yes (Death)
  Sender: FDA-Public Use
  Company Number: ZA-SUN PHARMACEUTICAL INDUSTRIES LTD-2019R1-204432

PATIENT
  Sex: Female

DRUGS (10)
  1. PANTOCID (PANTOPRAZOLE) [Suspect]
     Active Substance: PANTOPRAZOLE
     Indication: DYSPEPSIA
     Dosage: UNK
     Route: 048
     Dates: start: 201810
  2. ASPEN LAMZID [Suspect]
     Active Substance: LAMIVUDINE\ZIDOVUDINE
     Indication: ANTIVIRAL TREATMENT
     Dosage: UNK
     Route: 048
     Dates: start: 201810
  3. ASPEN EFAVIRENZ [Suspect]
     Active Substance: EFAVIRENZ
     Indication: ANTIVIRAL TREATMENT
     Dosage: UNK
     Route: 048
     Dates: start: 201810
  4. NUZAK [Suspect]
     Active Substance: FLUOXETINE HYDROCHLORIDE
     Indication: DEPRESSION
     Dosage: UNK
     Route: 048
     Dates: start: 201812
  5. TREPILINE [Suspect]
     Active Substance: AMITRIPTYLINE
     Indication: DEPRESSION
     Dosage: UNK
     Route: 048
     Dates: start: 201812
  6. UNAT [Suspect]
     Active Substance: TORSEMIDE
     Indication: POLYURIA
     Dosage: UNK
     Route: 048
     Dates: start: 201810
  7. RIVOTRIL [Suspect]
     Active Substance: CLONAZEPAM
     Indication: EPILEPSY
     Dosage: UNK
     Route: 048
     Dates: start: 201810
  8. DOPAQUEL [Suspect]
     Active Substance: QUETIAPINE
     Indication: PSYCHIATRIC SYMPTOM
     Dosage: UNK
     Route: 048
     Dates: start: 201810
  9. EPILIZINE CR [Suspect]
     Active Substance: VALPROATE SODIUM
     Indication: EPILEPSY
     Dosage: UNK
     Route: 048
     Dates: start: 201810
  10. ZOLNOXS [Suspect]
     Active Substance: ZOLPIDEM TARTRATE
     Indication: SLEEP DISORDER
     Dosage: UNK
     Route: 048
     Dates: start: 201810

REACTIONS (1)
  - Dyspnoea [Fatal]
